FAERS Safety Report 24590228 (Version 2)
Quarter: 2024Q4

REPORT INFORMATION
  Report Type: Report from Study
  Country: US (occurrence: US)
  Receive Date: 20241107
  Receipt Date: 20241110
  Transmission Date: 20250115
  Serious: Yes (Hospitalization, Other)
  Sender: UNITED THERAPEUTICS
  Company Number: US-UNITED THERAPEUTICS-UNT-2024-033328

PATIENT
  Sex: Male
  Weight: 94.331 kg

DRUGS (16)
  1. TREPROSTINIL [Suspect]
     Active Substance: TREPROSTINIL
     Indication: Pulmonary arterial hypertension
     Dosage: 10 MG, TID
     Dates: start: 2024, end: 2024
  2. TREPROSTINIL [Suspect]
     Active Substance: TREPROSTINIL
     Dosage: 0.25 MG, TID
     Dates: start: 2024
  3. TREPROSTINIL [Suspect]
     Active Substance: TREPROSTINIL
     Dosage: UNK
  4. ORENITRAM [Suspect]
     Active Substance: TREPROSTINIL
     Indication: Pulmonary arterial hypertension
  5. ORENITRAM [Suspect]
     Active Substance: TREPROSTINIL
     Indication: Pulmonary arterial hypertension
  6. REMODULIN [Suspect]
     Active Substance: TREPROSTINIL
     Indication: Pulmonary arterial hypertension
     Dosage: 0.015 ?G/KG, CONTINUING
     Route: 041
  7. REMODULIN [Suspect]
     Active Substance: TREPROSTINIL
     Dosage: UNK, CONTINUING
     Route: 041
  8. ADEMPAS [Concomitant]
     Active Substance: RIOCIGUAT
     Indication: Product used for unknown indication
  9. OMEPRAZOLE [Concomitant]
     Active Substance: OMEPRAZOLE
     Indication: Product used for unknown indication
  10. GABAPENTIN [Concomitant]
     Active Substance: GABAPENTIN
     Indication: Product used for unknown indication
  11. ELIQUIS [Concomitant]
     Active Substance: APIXABAN
     Indication: Product used for unknown indication
  12. POTASSIUM CHLORIDE [Concomitant]
     Active Substance: POTASSIUM CHLORIDE
     Indication: Product used for unknown indication
  13. OXYGEN [Concomitant]
     Active Substance: OXYGEN
     Indication: Product used for unknown indication
  14. SOTALOL HYDROCHLORIDE [Concomitant]
     Active Substance: SOTALOL HYDROCHLORIDE
     Indication: Product used for unknown indication
  15. AMBRISENTAN [Concomitant]
     Active Substance: AMBRISENTAN
     Indication: Product used for unknown indication
  16. TORSEMIDE [Concomitant]
     Active Substance: TORSEMIDE
     Indication: Product used for unknown indication

REACTIONS (6)
  - Gastrointestinal disorder [Unknown]
  - Vascular device infection [Unknown]
  - Headache [Unknown]
  - Nausea [Unknown]
  - Dyspnoea [Unknown]
  - Bacterial infection [Unknown]

NARRATIVE: CASE EVENT DATE: 20240101
